FAERS Safety Report 7750920-5 (Version None)
Quarter: 2011Q3

REPORT INFORMATION
  Report Type: 
  Country: None (occurrence: None)
  Receive Date: 20110914
  Receipt Date: 20110906
  Transmission Date: 20111222
  Serious: Yes (Other)
  Sender: FDA-Public Use
  Company Number: DE-JNJFOC-20110901690

PATIENT
  Age: 53 Year
  Sex: Male
  Weight: 57 kg

DRUGS (3)
  1. VITAMIN B-12 [Concomitant]
  2. REMICADE [Suspect]
     Indication: CROHN'S DISEASE
     Route: 042
     Dates: start: 20090101, end: 20110101
  3. FERRLECIT [Concomitant]

REACTIONS (5)
  - HYPERTENSIVE CRISIS [None]
  - DYSPNOEA [None]
  - FLUSHING [None]
  - INFUSION RELATED REACTION [None]
  - HEADACHE [None]
